FAERS Safety Report 8790052 (Version 1)
Quarter: 2012Q4

REPORT INFORMATION
  Report Type: Report from Study
  Country: BR (occurrence: BR)
  Receive Date: 20120917
  Receipt Date: 20120917
  Transmission Date: 20130627
  Serious: Yes (Other)
  Sender: FDA-Public Use
  Company Number: BR-PFIZER INC-2012225296

PATIENT
  Age: 61 Year
  Sex: Female

DRUGS (2)
  1. LIPITOR [Suspect]
     Indication: BLOOD CHOLESTEROL
     Dosage: UNK
     Route: 048
     Dates: start: 2009
  2. LEXOTAN [Concomitant]
     Indication: NERVOUS SYSTEM DISORDER
     Dosage: 6 mg, UNK
     Dates: start: 1982

REACTIONS (3)
  - Angina unstable [Unknown]
  - Infarction [Unknown]
  - Stress [Unknown]
